FAERS Safety Report 20852965 (Version 3)
Quarter: 2022Q3

REPORT INFORMATION
  Report Type: Spontaneous
  Country: IE (occurrence: IE)
  Receive Date: 20220520
  Receipt Date: 20220720
  Transmission Date: 20221027
  Serious: Yes (Life-Threatening, Hospitalization, Disabling, Congenital Anomaly, Other)
  Sender: FDA-Public Use
  Company Number: None

PATIENT
  Sex: Male
  Weight: 3.37 kg

DRUGS (4)
  1. TEGRETOL [Suspect]
     Active Substance: CARBAMAZEPINE
     Indication: Foetal exposure during pregnancy
     Dosage: UNK (MATERNAL DOSE: 600 MG, QD)
     Route: 064
     Dates: start: 201903
  2. TEGRETOL [Suspect]
     Active Substance: CARBAMAZEPINE
     Dosage: 400 MG, 12 HOURS
     Route: 064
     Dates: start: 20190301, end: 20200131
  3. CALCIUM\CHOLECALCIFEROL [Concomitant]
     Active Substance: CALCIUM\CHOLECALCIFEROL
     Indication: Foetal exposure during pregnancy
     Dosage: (500 MG/400 IU)
     Route: 064
  4. FOLIC ACID [Concomitant]
     Active Substance: FOLIC ACID
     Indication: Foetal exposure during pregnancy
     Dosage: UNK
     Route: 064

REACTIONS (28)
  - Aspiration [Not Recovered/Not Resolved]
  - Polymicrogyria [Not Recovered/Not Resolved]
  - Cerebral small vessel ischaemic disease [Not Recovered/Not Resolved]
  - Congenital anomaly of inner ear [Not Recovered/Not Resolved]
  - Brain malformation [Not Recovered/Not Resolved]
  - Muscle tone disorder [Not Recovered/Not Resolved]
  - Congenital eye disorder [Not Recovered/Not Resolved]
  - Cerebral ventricle dilatation [Not Recovered/Not Resolved]
  - Disorder of globe [Not Recovered/Not Resolved]
  - Septum pellucidum agenesis [Not Recovered/Not Resolved]
  - Cortical dysplasia [Not Recovered/Not Resolved]
  - Ventricular septal defect [Not Recovered/Not Resolved]
  - Choroidal effusion [Not Recovered/Not Resolved]
  - Fibromatosis colli of infancy [Not Recovered/Not Resolved]
  - Retinal detachment [Not Recovered/Not Resolved]
  - Micrognathia [Not Recovered/Not Resolved]
  - Congenital central nervous system anomaly [Not Recovered/Not Resolved]
  - Cleft palate [Not Recovered/Not Resolved]
  - Foetal exposure during pregnancy [Not Recovered/Not Resolved]
  - Cardiac murmur [Not Recovered/Not Resolved]
  - Patent ductus arteriosus [Not Recovered/Not Resolved]
  - Atrial septal defect [Not Recovered/Not Resolved]
  - Visual impairment [Not Recovered/Not Resolved]
  - Milk allergy [Not Recovered/Not Resolved]
  - Body height below normal [Not Recovered/Not Resolved]
  - Velopharyngeal incompetence [Not Recovered/Not Resolved]
  - Eczema [Not Recovered/Not Resolved]
  - Seborrhoeic dermatitis [Not Recovered/Not Resolved]
